FAERS Safety Report 19173504 (Version 4)
Quarter: 2021Q4

REPORT INFORMATION
  Report Type: Report from Study
  Country: US (occurrence: US)
  Receive Date: 20210423
  Receipt Date: 20211218
  Transmission Date: 20220304
  Serious: Yes (Hospitalization)
  Sender: FDA-Public Use
  Company Number: NVSC2021US087902

PATIENT
  Sex: Male

DRUGS (1)
  1. ENTRESTO [Suspect]
     Active Substance: SACUBITRIL\VALSARTAN
     Indication: Product used for unknown indication
     Dosage: 100 MG, BID (49/51 MG)
     Route: 048
     Dates: start: 202011

REACTIONS (7)
  - Chest pain [Recovering/Resolving]
  - Therapeutic response unexpected [Unknown]
  - Palpitations [Unknown]
  - Dyspnoea [Unknown]
  - Swelling [Unknown]
  - Fatigue [Unknown]
  - Product dose omission issue [Unknown]
